FAERS Safety Report 5566986-7 (Version None)
Quarter: 2007Q4

REPORT INFORMATION
  Report Type: 
  Country: None (occurrence: None)
  Receive Date: 20071219
  Receipt Date: 20070822
  Transmission Date: 20080405
  Serious: No
  Sender: FDA-Public Use
  Company Number: US-BRISTOL-MYERS SQUIBB COMPANY-13885405

PATIENT
  Age: 60 Year
  Sex: Female
  Weight: 91 kg

DRUGS (3)
  1. PRAVACHOL [Suspect]
     Indication: BLOOD CHOLESTEROL INCREASED
     Route: 048
  2. WELLBUTRIN XL [Concomitant]
  3. PROZAC [Concomitant]

REACTIONS (2)
  - APHTHOUS STOMATITIS [None]
  - PARAESTHESIA ORAL [None]
